FAERS Safety Report 11020034 (Version 2)
Quarter: 2015Q2

REPORT INFORMATION
  Report Type: Spontaneous
  Country: US (occurrence: US)
  Receive Date: 20150412
  Receipt Date: 20150525
  Transmission Date: 20150821
  Serious: Yes (Hospitalization)
  Sender: FDA-Public Use
  Company Number: US-JNJFOC-20131002518

PATIENT
  Age: 26 Year
  Sex: Male
  Weight: 68.04 kg

DRUGS (1)
  1. LEVOFLOXACIN. [Suspect]
     Active Substance: LEVOFLOXACIN
     Indication: SCROTAL DISORDER
     Route: 048
     Dates: start: 20130831, end: 201309

REACTIONS (3)
  - Muscular weakness [Not Recovered/Not Resolved]
  - Tendon rupture [Not Recovered/Not Resolved]
  - Abdominal pain [Not Recovered/Not Resolved]

NARRATIVE: CASE EVENT DATE: 201309
